FAERS Safety Report 4821745-5 (Version None)
Quarter: 2005Q4

REPORT INFORMATION
  Report Type: 
  Country: None (occurrence: None)
  Receive Date: 20051104
  Receipt Date: 20051104
  Transmission Date: 20060501
  Serious: Yes (Hospitalization)
  Sender: FDA-Public Use
  Company Number: None

PATIENT
  Age: 35 Year
  Sex: Male

DRUGS (2)
  1. MORPHINE [Suspect]
     Indication: PAIN
     Dosage: 10MG Q 4 HOURS IV
     Route: 042
     Dates: start: 20050828, end: 20050828
  2. FENTANYL [Suspect]
     Indication: PAIN
     Dosage: 25-50 MCG Q3HOURS IV
     Route: 042
     Dates: start: 20050828, end: 20050829

REACTIONS (2)
  - ANGIONEUROTIC OEDEMA [None]
  - DYSPHAGIA [None]
